FAERS Safety Report 5465245-0 (Version None)
Quarter: 2007Q3

REPORT INFORMATION
  Report Type: 
  Country: None (occurrence: None)
  Receive Date: 20070924
  Receipt Date: 20070914
  Transmission Date: 20080115
  Serious: Yes (Hospitalization)
  Sender: FDA-Public Use
  Company Number: GXBR2007US01608

PATIENT
  Age: 80 Year
  Sex: Female
  Weight: 40.816 kg

DRUGS (11)
  1. RIFAMPIN [Suspect]
     Indication: BACTERIAL INFECTION
     Dosage: 300 MG, TIW
     Route: 048
     Dates: start: 20070801
  2. ETHAMBUTOL [Concomitant]
     Dosage: 400 MG, TIW
     Route: 048
     Dates: start: 20070801
  3. AZITHROMYCIN [Concomitant]
     Dosage: 500 MG, TIW
     Route: 048
     Dates: start: 20070801
  4. CLONIDINE [Concomitant]
     Indication: BLOOD PRESSURE
     Dosage: 0.1 MG, PRN
  5. NORVASC [Concomitant]
     Indication: BLOOD PRESSURE
     Dosage: 5 MG, BID
     Route: 048
  6. NADOLOL [Concomitant]
     Indication: BLOOD PRESSURE
     Dosage: 20 MG, BID2SDO
     Route: 048
     Dates: start: 19980101
  7. LANOXIN [Concomitant]
     Indication: BLOOD PRESSURE
     Dosage: 0.25 MG, QOD
     Route: 048
     Dates: start: 19980101
  8. LANOXIN [Concomitant]
     Dosage: 0.125 MG, QOD
     Route: 048
     Dates: start: 19980101
  9. ACIPHEX [Concomitant]
     Dosage: 20 MG, QD
     Route: 048
  10. ASPIRIN [Concomitant]
     Indication: BLOOD PRESSURE
     Dosage: 81 MG, QD
     Route: 048
  11. LORAZEPAM [Concomitant]
     Dosage: 2 MG, BID
     Route: 048

REACTIONS (6)
  - DYSPEPSIA [None]
  - FLATULENCE [None]
  - HEART RATE INCREASED [None]
  - HEART RATE IRREGULAR [None]
  - HYPERTENSION [None]
  - NAUSEA [None]
